FAERS Safety Report 5153021-8 (Version None)
Quarter: 2006Q4

REPORT INFORMATION
  Report Type: 
  Country: None (occurrence: None)
  Receive Date: 20061117
  Receipt Date: 20061110
  Transmission Date: 20070319
  Serious: Yes (Death)
  Sender: FDA-Public Use
  Company Number: PHBS2006PL17755

PATIENT
  Age: 57 Year
  Sex: Male

DRUGS (1)
  1. METOPROLOL TARTRATE [Suspect]
     Dosage: 25 MG, BID
     Route: 048

REACTIONS (8)
  - ANGIOPATHY [None]
  - AORTIC RUPTURE [None]
  - CARDIAC TAMPONADE [None]
  - HEADACHE [None]
  - PERICARDITIS [None]
  - PERICARDITIS ADHESIVE [None]
  - RASH [None]
  - VEIN DISORDER [None]
